FAERS Safety Report 8182157-2 (Version None)
Quarter: 2012Q1

REPORT INFORMATION
  Report Type: 
  Country: None (occurrence: None)
  Receive Date: 20120302
  Receipt Date: 20120220
  Transmission Date: 20120608
  Serious: Yes (Other)
  Sender: FDA-Public Use
  Company Number: US-ELI_LILLY_AND_COMPANY-US201202005976

PATIENT
  Sex: Female

DRUGS (6)
  1. POTASSIUM CHLORIDE [Concomitant]
  2. SAVELLA [Concomitant]
     Indication: NEUROPATHY PERIPHERAL
  3. PHENOBARBITAL TAB [Concomitant]
  4. CYMBALTA [Suspect]
     Indication: NEUROPATHY PERIPHERAL
     Dosage: UNK
     Dates: start: 20111201
  5. GABAPENTIN [Concomitant]
     Indication: NEUROPATHY PERIPHERAL
     Dosage: 600 MG, TID
  6. LYRICA [Concomitant]
     Indication: NEUROPATHY PERIPHERAL

REACTIONS (4)
  - BURNING SENSATION [None]
  - OFF LABEL USE [None]
  - MOBILITY DECREASED [None]
  - PRURITUS [None]
